FAERS Safety Report 4885135-1 (Version None)
Quarter: 2005Q4

REPORT INFORMATION
  Report Type: 
  Country: None (occurrence: None)
  Receive Date: 20051201
  Receipt Date: 20050915
  Transmission Date: 20060501
  Serious: No
  Sender: FDA-Public Use
  Company Number: 2005PV002145

PATIENT
  Age: 47 Year
  Sex: 0
  Weight: 123.832 kg

DRUGS (7)
  1. BYETTA [Suspect]
     Indication: DIABETES MELLITUS NON-INSULIN-DEPENDENT
     Dosage: 5 MCG; BID; SC
     Route: 058
     Dates: start: 20050906
  2. GLUCOPHAGE [Concomitant]
  3. AVANDIA [Concomitant]
  4. AMARYL [Concomitant]
  5. GLYCERL [Concomitant]
  6. GLYCET [Concomitant]
  7. HUMALOG [Concomitant]

REACTIONS (3)
  - DECREASED APPETITE [None]
  - ENERGY INCREASED [None]
  - WEIGHT DECREASED [None]
